FAERS Safety Report 9258111 (Version 1)
Quarter: 2013Q2

REPORT INFORMATION
  Report Type: Spontaneous
  Country: LK (occurrence: None)
  Receive Date: 20130423
  Receipt Date: 20130423
  Transmission Date: 20140414
  Serious: Yes (Hospitalization)
  Sender: FDA-Public Use
  Company Number: LK-INDICUS PHARMA-000065

PATIENT
  Age: 18 Year
  Sex: Female

DRUGS (1)
  1. METFORMIN HYDROCHLORIDE (METFORMIN HYDROCHLORIDE) [Suspect]

REACTIONS (10)
  - Overdose [None]
  - Suicide attempt [None]
  - Lactic acidosis [None]
  - Hypotension [None]
  - Drug interaction [None]
  - Hypoglycaemic seizure [None]
  - Grand mal convulsion [None]
  - Dyspnoea [None]
  - Dyspepsia [None]
  - Vomiting [None]
